FAERS Safety Report 22621380 (Version 1)
Quarter: 2023Q2

REPORT INFORMATION
  Report Type: Spontaneous
  Country: US (occurrence: US)
  Receive Date: 20230620
  Receipt Date: 20230620
  Transmission Date: 20230722
  Serious: No
  Sender: FDA-Public Use
  Company Number: US-TEVA-2023-US-2894339

PATIENT
  Sex: Female

DRUGS (1)
  1. DEXTROAMPHET SACCHARAT, AMPHET ASPARTATE, DEXTROAMPHET SULFATE AND AMP [Suspect]
     Active Substance: AMPHETAMINE ASPARTATE\AMPHETAMINE ASPARTATE MONOHYDRATE\AMPHETAMINE SULFATE\DEXTROAMPHETAMINE SACCHA
     Indication: Attention deficit hyperactivity disorder
     Dosage: STRENGTH: 30 MG
     Route: 065

REACTIONS (10)
  - Intrusive thoughts [Unknown]
  - Change in sustained attention [Unknown]
  - Dyspepsia [Unknown]
  - Migraine [Unknown]
  - Communication disorder [Unknown]
  - Aphasia [Unknown]
  - Thinking abnormal [Unknown]
  - Social avoidant behaviour [Unknown]
  - Disturbance in attention [Unknown]
  - Drug ineffective [Unknown]
